FAERS Safety Report 9314111 (Version 1)
Quarter: 2013Q2

REPORT INFORMATION
  Report Type: Spontaneous
  Country: US (occurrence: None)
  Receive Date: 20130524
  Receipt Date: 20130524
  Transmission Date: 20140414
  Serious: Yes (Hospitalization)
  Sender: FDA-Public Use
  Company Number: None

PATIENT
  Age: 60 Year
  Sex: Male
  Weight: 70.9 kg

DRUGS (1)
  1. CETUXIMAB [Suspect]
     Dosage: TOTAL DOSE 3040 MG

REACTIONS (4)
  - Nausea [None]
  - Vomiting [None]
  - Dyspnoea [None]
  - Chills [None]
